FAERS Safety Report 6228531-2 (Version None)
Quarter: 2009Q2

REPORT INFORMATION
  Report Type: 
  Country: None (occurrence: None)
  Receive Date: 20090612
  Receipt Date: 20090610
  Transmission Date: 20091009
  Serious: Yes (Life-Threatening, Other)
  Sender: FDA-Public Use
  Company Number: PHEH2009US06076

PATIENT

DRUGS (1)
  1. RECLAST [Suspect]
     Indication: OSTEOPOROSIS
     Dosage: 5 MG, UNK
     Route: 042

REACTIONS (4)
  - ANGINA PECTORIS [None]
  - FEELING ABNORMAL [None]
  - PAIN [None]
  - PALPITATIONS [None]
